FAERS Safety Report 6802629-X (Version None)
Quarter: 2010Q2

REPORT INFORMATION
  Report Type: 
  Country: None (occurrence: None)
  Receive Date: 20100628
  Receipt Date: 20100618
  Transmission Date: 20101027
  Serious: No
  Sender: FDA-Public Use
  Company Number: US-JNJFOC-20100606158

PATIENT
  Sex: Female
  Weight: 68.49 kg

DRUGS (22)
  1. SANDOZ FENTANYL TRANSDERMAL SYSTEM [Suspect]
     Indication: BACK PAIN
     Route: 062
  2. NPH INSULIN [Concomitant]
     Indication: DIABETES MELLITUS
     Route: 058
  3. ACTOS [Concomitant]
     Indication: DIABETES MELLITUS
     Route: 048
  4. METFORMIN HCL [Concomitant]
     Indication: DIABETES MELLITUS
     Route: 048
  5. LOPID [Concomitant]
     Indication: DRUG USE FOR UNKNOWN INDICATION
     Route: 048
  6. THEOPHYLLINE [Concomitant]
     Indication: RESPIRATORY DISORDER
     Route: 048
  7. NEURONTIN [Concomitant]
     Indication: DIABETES MELLITUS
     Dosage: 300 MG TID
     Route: 048
  8. TRAZODONE HYDROCHLORIDE [Concomitant]
     Indication: SLEEP DISORDER
     Route: 048
  9. ASPIRIN [Concomitant]
     Indication: CARDIAC DISORDER
     Route: 048
  10. SINGULAIR [Concomitant]
     Indication: RESPIRATORY DISORDER
     Route: 048
  11. LISINOPRIL [Concomitant]
     Indication: DRUG USE FOR UNKNOWN INDICATION
     Route: 048
  12. NEXIUM [Concomitant]
     Indication: GASTRIC DISORDER
     Route: 048
  13. VYTORIN [Concomitant]
     Indication: DRUG USE FOR UNKNOWN INDICATION
     Route: 048
  14. CITALOPRAM [Concomitant]
     Indication: DEPRESSION
     Route: 048
  15. SANCTURA XR [Concomitant]
     Indication: BLADDER DISORDER
     Route: 048
  16. GLYCOLAX [Concomitant]
     Indication: CONSTIPATION
     Route: 065
  17. MIRAPEX [Concomitant]
     Indication: RESTLESS LEGS SYNDROME
     Route: 048
  18. LASIX [Concomitant]
     Indication: FLUID RETENTION
     Route: 048
  19. COMBIVENT [Concomitant]
     Indication: RESPIRATORY DISORDER
     Route: 055
  20. SPIRIVA [Concomitant]
     Indication: RESPIRATORY DISORDER
     Route: 048
  21. ALBUTEROL [Concomitant]
     Indication: CHRONIC OBSTRUCTIVE PULMONARY DISEASE
     Route: 048
  22. REGULAR INSULIN [Concomitant]
     Indication: DIABETES MELLITUS
     Route: 058

REACTIONS (2)
  - INAPPROPRIATE SCHEDULE OF DRUG ADMINISTRATION [None]
  - PRODUCT QUALITY ISSUE [None]
